FAERS Safety Report 19376872 (Version 1)
Quarter: 2021Q2

REPORT INFORMATION
  Report Type: Spontaneous
  Country: US (occurrence: US)
  Receive Date: 20210604
  Receipt Date: 20210604
  Transmission Date: 20210717
  Serious: Yes (Other)
  Sender: FDA-Public Use
  Company Number: US-GLAXOSMITHKLINE-US2021115336

PATIENT
  Sex: Female

DRUGS (2)
  1. VOLTAREN [Suspect]
     Active Substance: DICLOFENAC SODIUM
     Indication: PRODUCT USED FOR UNKNOWN INDICATION
     Dosage: UNK
     Dates: end: 202104
  2. BENLYSTA [Suspect]
     Active Substance: BELIMUMAB
     Indication: PRODUCT USED FOR UNKNOWN INDICATION
     Dosage: UNK
     Dates: start: 202010

REACTIONS (8)
  - Incorrect product administration duration [Unknown]
  - Fatigue [Recovered/Resolved]
  - Skin laceration [Recovered/Resolved]
  - Symptom recurrence [Recovered/Resolved]
  - Hepatic enzyme increased [Recovered/Resolved]
  - Systemic lupus erythematosus [Recovered/Resolved]
  - Arthralgia [Recovered/Resolved]
  - Feeling abnormal [Recovered/Resolved]
